FAERS Safety Report 18071321 (Version 1)
Quarter: 2020Q3

REPORT INFORMATION
  Report Type: Spontaneous
  Country: US (occurrence: US)
  Receive Date: 20200726
  Receipt Date: 20200726
  Transmission Date: 20201103
  Serious: Yes (Disabling)
  Sender: FDA-Public Use
  Company Number: None

PATIENT
  Age: 50 Year
  Sex: Female
  Weight: 76.5 kg

DRUGS (9)
  1. FLUCONAZOLE. [Concomitant]
     Active Substance: FLUCONAZOLE
  2. CEPHALEXIN. [Concomitant]
     Active Substance: CEPHALEXIN
  3. TRIAMCINOLONE CREAM [Concomitant]
     Active Substance: TRIAMCINOLONE
  4. VITAMINS [Concomitant]
     Active Substance: VITAMINS
  5. VITAMIN C [Concomitant]
     Active Substance: ASCORBIC ACID
  6. BLUMEN CLEAR ADVANCED HAND SANITIZER [Suspect]
     Active Substance: ALCOHOL
     Indication: INFECTION PROPHYLAXIS
     Route: 061
     Dates: start: 20200401, end: 20200724
  7. PANTOPRAZOLE [Concomitant]
     Active Substance: PANTOPRAZOLE
  8. SILVER SULFADIAZINE. [Concomitant]
     Active Substance: SILVER SULFADIAZINE
  9. BLUMEN CLEAR ADVANCED HAND SANITIZER [Suspect]
     Active Substance: ALCOHOL
     Indication: INFECTION PROPHYLAXIS
     Dosage: ?          QUANTITY:1 OUNCE(S);?
     Route: 061

REACTIONS (29)
  - Contusion [None]
  - Cough [None]
  - Abdominal pain [None]
  - Swelling [None]
  - Folliculitis [None]
  - Arthralgia [None]
  - Aphthous ulcer [None]
  - Nausea [None]
  - Back pain [None]
  - Malaise [None]
  - Ear pain [None]
  - Faeces discoloured [None]
  - Diarrhoea [None]
  - Neck pain [None]
  - Burning sensation [None]
  - Lid sulcus deepened [None]
  - Vision blurred [None]
  - Dyspnoea [None]
  - Chest discomfort [None]
  - Fatigue [None]
  - Swelling face [None]
  - Muscular weakness [None]
  - Eye pain [None]
  - Abdominal discomfort [None]
  - Oropharyngeal pain [None]
  - Paranasal sinus discomfort [None]
  - Pain [None]
  - Rash pruritic [None]
  - Discomfort [None]

NARRATIVE: CASE EVENT DATE: 20200403
